FAERS Safety Report 6147518-1 (Version None)
Quarter: 2009Q2

REPORT INFORMATION
  Report Type: 
  Country: None (occurrence: None)
  Receive Date: 20090406
  Receipt Date: 20090318
  Transmission Date: 20091009
  Serious: No
  Sender: FDA-Public Use
  Company Number: 2009-193514-NL

PATIENT
  Age: 58 Year
  Sex: Male

DRUGS (2)
  1. DEXAMETHASONE 4MG TAB [Suspect]
     Dosage: DF
  2. BORTEZOMIB [Suspect]
     Dosage: DF

REACTIONS (3)
  - FACE OEDEMA [None]
  - NEUROPATHY PERIPHERAL [None]
  - SKIN NODULE [None]
